FAERS Safety Report 5283206-1 (Version None)
Quarter: 2007Q2

REPORT INFORMATION
  Report Type: 
  Country: None (occurrence: None)
  Receive Date: 20070402
  Receipt Date: 20070321
  Transmission Date: 20071010
  Serious: Yes (Hospitalization)
  Sender: FDA-Public Use
  Company Number: FR-GLAXOSMITHKLINE-B0459039A

PATIENT
  Age: 75 Year
  Sex: Male
  Weight: 70 kg

DRUGS (11)
  1. ARIXTRA [Suspect]
     Indication: DRUG USE FOR UNKNOWN INDICATION
     Route: 058
     Dates: start: 20070115, end: 20070121
  2. OMEPRAZOLE [Concomitant]
     Dates: start: 20070119
  3. SOLUPRED [Concomitant]
  4. SPASFON [Concomitant]
     Dates: start: 20070119
  5. IMOVANE [Concomitant]
     Dates: start: 20070119
  6. ALUMINUM HYDROXIDE AND MAGNESIUM TRISILICATE [Concomitant]
     Dates: start: 20070119
  7. DOLIPRANE [Concomitant]
     Dates: start: 20070119, end: 20070120
  8. DIFFU K [Concomitant]
     Dates: start: 20070119
  9. EFFERALGAN CODEINE [Concomitant]
     Dates: start: 20070120
  10. PENTASA [Concomitant]
  11. PREVISCAN [Concomitant]

REACTIONS (13)
  - BUNDLE BRANCH BLOCK LEFT [None]
  - BUNDLE BRANCH BLOCK RIGHT [None]
  - CARDIOMEGALY [None]
  - COLITIS [None]
  - COLONIC HAEMATOMA [None]
  - GASTROINTESTINAL NECROSIS [None]
  - HAEMATOMA INFECTION [None]
  - HYPOCALCAEMIA [None]
  - HYPOKALAEMIA [None]
  - RECTAL ULCER [None]
  - SHOCK HAEMORRHAGIC [None]
  - SUPRAVENTRICULAR EXTRASYSTOLES [None]
  - THROMBOCYTOPENIA [None]
